FAERS Safety Report 24586757 (Version 1)
Quarter: 2024Q4

REPORT INFORMATION
  Report Type: Report from Study
  Country: US (occurrence: US)
  Receive Date: 20241107
  Receipt Date: 20241107
  Transmission Date: 20250115
  Serious: Yes (Hospitalization)
  Sender: JOHNSON AND JOHNSON
  Company Number: US-JNJFOC-20241109023

PATIENT
  Age: 38 Year
  Sex: Female

DRUGS (7)
  1. SPRAVATO [Suspect]
     Active Substance: ESKETAMINE
     Indication: Depression
     Dosage: 56 MG, 8 TOTAL DOSES 8TH DOSE UNSPECIFIED DATE IN JAN-2022
     Dates: start: 20211207, end: 202201
  2. SPRAVATO [Suspect]
     Active Substance: ESKETAMINE
     Dosage: 84  MG, 16 TOTAL DOSES
     Dates: start: 20220119, end: 20220616
  3. SPRAVATO [Suspect]
     Active Substance: ESKETAMINE
     Dosage: 56 MG, 7 TOTAL DOSES
     Dates: start: 20230110, end: 20230207
  4. SPRAVATO [Suspect]
     Active Substance: ESKETAMINE
     Dosage: 84 MG, 69 TOTAL DOSES
     Dates: start: 20230209, end: 20241025
  5. SPRAVATO [Suspect]
     Active Substance: ESKETAMINE
     Dosage: 84 MG, 1 TOTAL DOSES
     Dates: start: 20241030, end: 20241030
  6. CARIPRAZINE [Concomitant]
     Active Substance: CARIPRAZINE
     Route: 065
  7. ONDANSETRON [Concomitant]
     Active Substance: ONDANSETRON
     Route: 065

REACTIONS (3)
  - Dystonia [Recovered/Resolved]
  - Sedation [Recovered/Resolved]
  - Dissociation [Recovered/Resolved]

NARRATIVE: CASE EVENT DATE: 20241030
